FAERS Safety Report 12709539 (Version 1)
Quarter: 2016Q3

REPORT INFORMATION
  Report Type: Report from Study
  Country: CA (occurrence: CA)
  Receive Date: 20160902
  Receipt Date: 20160902
  Transmission Date: 20161109
  Serious: Yes (Other)
  Sender: FDA-Public Use
  Company Number: CA-JNJFOC-20160901158

PATIENT
  Age: 37 Year
  Sex: Male
  Weight: 108 kg

DRUGS (2)
  1. REMICADE [Suspect]
     Active Substance: INFLIXIMAB
     Indication: CROHN^S DISEASE
     Dosage: EVERY 8-12 WEEKS
     Route: 042
     Dates: start: 20131116
  2. REMICADE [Suspect]
     Active Substance: INFLIXIMAB
     Indication: CROHN^S DISEASE
     Route: 042
     Dates: start: 20160623

REACTIONS (4)
  - Off label use [Unknown]
  - Abscess [Unknown]
  - Abscess limb [Unknown]
  - Product use issue [Unknown]

NARRATIVE: CASE EVENT DATE: 20131116
